FAERS Safety Report 16135168 (Version 2)
Quarter: 2019Q2

REPORT INFORMATION
  Report Type: Report from Study
  Country: GB (occurrence: FI)
  Receive Date: 20190329
  Receipt Date: 20190410
  Transmission Date: 20190711
  Serious: Yes (Hospitalization, Other)
  Sender: FDA-Public Use
  Company Number: FI-TEVA-2019-FI-1030975

PATIENT
  Age: 31 Year
  Sex: Male

DRUGS (10)
  1. LEPONEX [Suspect]
     Active Substance: CLOZAPINE
     Indication: PRODUCT USED FOR UNKNOWN INDICATION
     Dosage: 100 MILLIGRAM DAILY;
     Dates: start: 20181122, end: 20181124
  2. ZALASTA [Suspect]
     Active Substance: OLANZAPINE
     Dosage: 5 MILLIGRAM, PM
     Dates: start: 20181210
  3. LEPONEX [Suspect]
     Active Substance: CLOZAPINE
     Dosage: 25 MILLIGRAM, QD
     Dates: start: 20181108, end: 20181120
  4. OPAMOX [Concomitant]
     Active Substance: OXAZEPAM
     Indication: PRODUCT USED FOR UNKNOWN INDICATION
  5. ARIPIPRAZOLE. [Suspect]
     Active Substance: ARIPIPRAZOLE
     Indication: PRODUCT USED FOR UNKNOWN INDICATION
     Dosage: 30 MILLIGRAM DAILY;
     Dates: start: 201804
  6. ARIPIPRAZOLE. [Suspect]
     Active Substance: ARIPIPRAZOLE
     Dosage: 15 MILLIGRAM, QD
     Dates: end: 201804
  7. ZALASTA [Suspect]
     Active Substance: OLANZAPINE
     Indication: PRODUCT USED FOR UNKNOWN INDICATION
     Dosage: 10 MILLIGRAM DAILY; PM
     Dates: start: 20181217
  8. ZALASTA [Suspect]
     Active Substance: OLANZAPINE
     Dosage: 15 MILLIGRAM, PM
     Dates: start: 20181221
  9. LEPONEX [Suspect]
     Active Substance: CLOZAPINE
     Dosage: 200 MILLIGRAM, PM
     Dates: start: 20181120, end: 20181122
  10. BRINTELLIX [Concomitant]
     Active Substance: VORTIOXETINE HYDROBROMIDE
     Indication: PRODUCT USED FOR UNKNOWN INDICATION
     Dosage: 10 MILLIGRAM DAILY;
     Dates: start: 201804

REACTIONS (9)
  - Pneumonia [Recovered/Resolved]
  - Angina pectoris [Unknown]
  - Pulse abnormal [Recovered/Resolved]
  - Syncope [Recovered/Resolved]
  - Wound haemorrhage [Recovered/Resolved]
  - Eosinophil count increased [Recovered/Resolved]
  - Myocarditis [Recovered/Resolved]
  - Schizophrenia [Unknown]
  - Palpitations [Unknown]

NARRATIVE: CASE EVENT DATE: 201811
